FAERS Safety Report 9720128 (Version 11)
Quarter: 2014Q3

REPORT INFORMATION
  Report Type: Spontaneous
  Country: US (occurrence: US)
  Receive Date: 20131128
  Receipt Date: 20140915
  Transmission Date: 20150326
  Serious: No
  Sender: FDA-Public Use
  Company Number: US-009507513-1311USA012118

PATIENT
  Age: 56 Year
  Sex: Female

DRUGS (9)
  1. RIBASPHERE [Suspect]
     Active Substance: RIBAVIRIN
     Dosage: ALTERNATE SCHEDULING OF 600MG/DAY OR 400 MG/DAY
     Route: 065
     Dates: start: 20140507
  2. PEGASYS [Suspect]
     Active Substance: PEGINTERFERON ALFA-2A
     Indication: CHRONIC HEPATITIS C
     Dosage: 180 MICROGRAM, QW (PROCLICK INJECTOR)
     Route: 065
     Dates: start: 20130918, end: 20140121
  3. RIBASPHERE [Suspect]
     Active Substance: RIBAVIRIN
     Dosage: 400 MG, DAILY
     Route: 065
     Dates: start: 20131031, end: 20131110
  4. RIBASPHERE [Suspect]
     Active Substance: RIBAVIRIN
     Indication: CHRONIC HEPATITIS C
     Dosage: 1200 MG, QD
     Route: 065
     Dates: start: 20130919, end: 20131016
  5. BOCEPREVIR [Suspect]
     Active Substance: BOCEPREVIR
     Indication: CHRONIC HEPATITIS C
     Dosage: 3 IN 1 D
     Route: 048
     Dates: start: 20130919, end: 2014
  6. PEGASYS [Suspect]
     Active Substance: PEGINTERFERON ALFA-2A
     Dosage: 90 MICROGRAM, 1 IN 1 WEEKLY
     Route: 065
     Dates: start: 20140122, end: 20140813
  7. RIBASPHERE [Suspect]
     Active Substance: RIBAVIRIN
     Dosage: 800 MG, DAILY
     Route: 065
     Dates: start: 20131017, end: 20131030
  8. RIBASPHERE [Suspect]
     Active Substance: RIBAVIRIN
     Dosage: 600 MG, QD
     Route: 065
     Dates: start: 20131111, end: 20140506
  9. ESCITALOPRAM [Concomitant]
     Active Substance: ESCITALOPRAM OXALATE
     Dosage: 5 MG, QD

REACTIONS (18)
  - Bronchitis [Recovering/Resolving]
  - Anaemia [Unknown]
  - Nasal discomfort [Unknown]
  - Haemoglobin decreased [Recovering/Resolving]
  - Platelet count decreased [Unknown]
  - Nasal congestion [Unknown]
  - Nasal dryness [Unknown]
  - Nasal discharge discolouration [Unknown]
  - Fatigue [Unknown]
  - Hypersensitivity [Unknown]
  - Neutrophil count decreased [Recovering/Resolving]
  - White blood cell count decreased [Unknown]
  - Alopecia [Recovering/Resolving]
  - Accidental overdose [Unknown]
  - Nasal ulcer [Recovered/Resolved]
  - Dehydration [Unknown]
  - Pyrexia [Unknown]
  - Cough [Recovering/Resolving]

NARRATIVE: CASE EVENT DATE: 2013
